FAERS Safety Report 14321427 (Version 6)
Quarter: 2018Q1

REPORT INFORMATION
  Report Type: Report from Study
  Country: DE (occurrence: DE)
  Receive Date: 20171223
  Receipt Date: 20180314
  Transmission Date: 20180509
  Serious: Yes (Other)
  Sender: FDA-Public Use
  Company Number: DE-TEVA-2017-DE-833926

PATIENT
  Age: 62 Year
  Sex: Male
  Weight: 95 kg

DRUGS (10)
  1. PEGYLATED LIPOSOMAL IRINOTECAN [Suspect]
     Active Substance: IRINOTECAN HYDROCHLORIDE
     Indication: OFF LABEL USE
  2. DOXYCYCLINE. [Concomitant]
     Active Substance: DOXYCYCLINE
     Dosage: 100 UNKOWN, BID
     Dates: start: 20171024
  3. FOLINIC ACID [Suspect]
     Active Substance: LEUCOVORIN
     Indication: COLORECTAL CANCER METASTATIC
     Route: 065
     Dates: start: 20171025
  4. FLUOROURACIL. [Suspect]
     Active Substance: FLUOROURACIL
     Route: 040
     Dates: start: 20171025
  5. PANITUMUMAB RECOMBINANT SOLUTION FOR INJECTION [Suspect]
     Active Substance: PANITUMUMAB
     Indication: COLORECTAL CANCER METASTATIC
     Dosage: 570 MG, UNK
     Route: 042
     Dates: start: 20171121
  6. FLUOROURACIL. [Suspect]
     Active Substance: FLUOROURACIL
     Indication: COLORECTAL CANCER METASTATIC
     Route: 040
     Dates: start: 20171025
  7. LOPERAMID [Concomitant]
     Active Substance: LOPERAMIDE
     Indication: PROPHYLAXIS
     Dates: start: 20171024
  8. PANITUMUMAB RECOMBINANT SOLUTION FOR INJECTION [Suspect]
     Active Substance: PANITUMUMAB
     Indication: COLORECTAL CANCER METASTATIC
     Dosage: 570 MG, UNK
     Route: 042
     Dates: start: 20171025, end: 20171025
  9. PEGYLATED LIPOSOMAL IRINOTECAN [Suspect]
     Active Substance: IRINOTECAN HYDROCHLORIDE
     Indication: COLORECTAL CANCER METASTATIC
     Route: 065
     Dates: start: 20171025, end: 20171025
  10. ONDANSETRON [Concomitant]
     Active Substance: ONDANSETRON
     Indication: PROPHYLAXIS
     Dosage: 8 MG, UNK
     Dates: start: 20171024

REACTIONS (2)
  - Off label use [Recovered/Resolved]
  - Neutropenia [Recovered/Resolved]

NARRATIVE: CASE EVENT DATE: 20171113
